FAERS Safety Report 15371879 (Version 1)
Quarter: 2018Q3

REPORT INFORMATION
  Report Type: Spontaneous
  Country: US (occurrence: US)
  Receive Date: 20180911
  Receipt Date: 20180911
  Transmission Date: 20181010
  Serious: No
  Sender: FDA-Public Use
  Company Number: US-BAYER-2018-170470

PATIENT
  Sex: Female

DRUGS (1)
  1. CLARITIN [Suspect]
     Active Substance: LORATADINE
     Dosage: 0.5 DF, UNK
     Route: 048
     Dates: start: 20180728, end: 20180906

REACTIONS (3)
  - Product use issue [None]
  - Wrong technique in product usage process [None]
  - Blood glucose increased [Unknown]

NARRATIVE: CASE EVENT DATE: 201807
